FAERS Safety Report 5012541-7 (Version None)
Quarter: 2006Q2

REPORT INFORMATION
  Report Type: 
  Country: None (occurrence: None)
  Receive Date: 20060526
  Receipt Date: 20060522
  Transmission Date: 20061013
  Serious: Yes (Congenital Anomaly, Other)
  Sender: FDA-Public Use
  Company Number: US-MERCK-0605USA04116B1

PATIENT
  Sex: Male

DRUGS (1)
  1. PROPECIA [Suspect]
     Dates: start: 20030101

REACTIONS (2)
  - ARTERIOVENOUS MALFORMATION [None]
  - CEREBRAL HAEMORRHAGE NEONATAL [None]
